FAERS Safety Report 11279450 (Version 1)
Quarter: 2015Q3

REPORT INFORMATION
  Report Type: Spontaneous
  Country: US (occurrence: None)
  Receive Date: 20150715
  Receipt Date: 20150715
  Transmission Date: 20151125
  Serious: Yes (Other)
  Sender: FDA-Public Use
  Company Number: FK201503244

PATIENT
  Age: 20 Year
  Sex: Male

DRUGS (2)
  1. ROPIVACAINE (MANUFACTURER UNKNOWN) (ROPIVACAINE) (ROPIVACAINE) [Suspect]
     Active Substance: ROPIVACAINE
     Indication: LEG AMPUTATION
     Dosage: SINGLE SHOT SCIATIC BLOCK,
  2. VORICONAZOLE (VORICONAZOLE) (VORICONAZOLE) [Suspect]
     Active Substance: VORICONAZOLE
     Indication: LEG AMPUTATION

REACTIONS (5)
  - Pain in extremity [None]
  - Dysgeusia [None]
  - Dizziness [None]
  - Diplopia [None]
  - Leg amputation [None]
